FAERS Safety Report 9194604 (Version 1)
Quarter: 2013Q1

REPORT INFORMATION
  Report Type: Spontaneous
  Country: US (occurrence: US)
  Receive Date: 20130327
  Receipt Date: 20130327
  Transmission Date: 20140127
  Serious: No
  Sender: FDA-Public Use
  Company Number: US-ALLERGAN-1206977US

PATIENT
  Age: 31 Year
  Sex: Female

DRUGS (2)
  1. LATISSE 0.03% [Suspect]
     Indication: GROWTH OF EYELASHES
     Dosage: 2 GTT, QHS
     Route: 061
     Dates: end: 201107
  2. VISINE                             /00256502/ [Concomitant]
     Indication: DRY EYE
     Dosage: UNK
     Route: 047

REACTIONS (3)
  - Trichiasis [Unknown]
  - Foreign body sensation in eyes [Unknown]
  - Madarosis [Unknown]
